FAERS Safety Report 15257003 (Version 2)
Quarter: 2018Q3

REPORT INFORMATION
  Report Type: Report from Study
  Country: US (occurrence: US)
  Receive Date: 20180808
  Receipt Date: 20180813
  Transmission Date: 20181010
  Serious: No
  Sender: FDA-Public Use
  Company Number: PHEH2018US032867

PATIENT
  Sex: Female

DRUGS (1)
  1. ENTRESTO [Suspect]
     Active Substance: SACUBITRIL\VALSARTAN
     Indication: PRODUCT USED FOR UNKNOWN INDICATION
     Dosage: 1 DF (SACUBITRIL 49MG AND VALSARTAN 51MG), UNK
     Route: 048
     Dates: start: 20180716, end: 20180731

REACTIONS (2)
  - Irritability [Unknown]
  - Allergic reaction to excipient [Recovering/Resolving]
